FAERS Safety Report 8225919-5 (Version None)
Quarter: 2012Q1

REPORT INFORMATION
  Report Type: 
  Country: None (occurrence: None)
  Receive Date: 20120321
  Receipt Date: 20120313
  Transmission Date: 20120608
  Serious: Yes (Other)
  Sender: FDA-Public Use
  Company Number: US-CELGENEUS-163-21880-12030351

PATIENT
  Sex: Female
  Weight: 62.3 kg

DRUGS (10)
  1. REVLIMID [Suspect]
     Dosage: 10 MILLIGRAM
     Route: 048
     Dates: start: 20120113
  2. ASPIRIN [Concomitant]
     Route: 065
  3. PROTONIX [Concomitant]
     Route: 065
  4. MINOCYCLINE HCL [Concomitant]
     Route: 065
  5. NEURONTIN [Concomitant]
     Route: 065
  6. TUSSEND [Concomitant]
     Route: 065
  7. BENADRYL [Concomitant]
     Route: 065
  8. LEVAQUIN [Concomitant]
     Route: 065
  9. DAPSONE [Concomitant]
     Route: 065
  10. DILAUDID [Concomitant]
     Route: 065

REACTIONS (2)
  - LYMPHADENOPATHY [None]
  - DRUG INEFFECTIVE [None]
